FAERS Safety Report 16349831 (Version 1)
Quarter: 2019Q2

REPORT INFORMATION
  Report Type: Spontaneous
  Country: FR (occurrence: FR)
  Receive Date: 20190523
  Receipt Date: 20190523
  Transmission Date: 20190711
  Serious: Yes (Hospitalization)
  Sender: FDA-Public Use
  Company Number: PHHY2019FR118591

PATIENT
  Age: 80 Year
  Sex: Female

DRUGS (1)
  1. EXFORGE [Suspect]
     Active Substance: AMLODIPINE BESYLATE\VALSARTAN
     Indication: HYPERTENSION
     Dosage: 85 MG, QD (5 MG AMLODIPINE /80 MG VALSARTAN)
     Route: 065

REACTIONS (2)
  - Eczema [Unknown]
  - Wound [Not Recovered/Not Resolved]

NARRATIVE: CASE EVENT DATE: 201811
